FAERS Safety Report 24668874 (Version 2)
Quarter: 2025Q1

REPORT INFORMATION
  Report Type: Spontaneous
  Country: US (occurrence: US)
  Receive Date: 20241127
  Receipt Date: 20250203
  Transmission Date: 20250409
  Serious: Yes (Other)
  Sender: AMGEN
  Company Number: US-AMGEN-USASP2024230817

PATIENT
  Age: 75 Year
  Sex: Female

DRUGS (3)
  1. DARBEPOETIN ALFA [Suspect]
     Active Substance: DARBEPOETIN ALFA
     Indication: Primary myelofibrosis
     Route: 065
  2. DARBEPOETIN ALFA [Suspect]
     Active Substance: DARBEPOETIN ALFA
     Indication: Chronic kidney disease
  3. DARBEPOETIN ALFA [Suspect]
     Active Substance: DARBEPOETIN ALFA
     Indication: Anaemia

REACTIONS (5)
  - Glomerulonephropathy [Unknown]
  - Myeloproliferative neoplasm [Unknown]
  - Pulmonary atypical adenomatous hyperplasia [Unknown]
  - Extramedullary haemopoiesis [Unknown]
  - Pleural effusion [Unknown]
